FAERS Safety Report 5298823-2 (Version None)
Quarter: 2007Q2

REPORT INFORMATION
  Report Type: 
  Country: None (occurrence: None)
  Receive Date: 20070417
  Receipt Date: 20070405
  Transmission Date: 20071010
  Serious: Yes (Other)
  Sender: FDA-Public Use
  Company Number: JP-NOVOPROD-261276

PATIENT
  Age: 48 Year
  Sex: Female
  Weight: 66 kg

DRUGS (6)
  1. NOVOLIN R [Suspect]
     Indication: INSULIN-REQUIRING TYPE II DIABETES MELLITUS
     Dosage: 12 IU, UNK
     Route: 058
     Dates: start: 20060206, end: 20061021
  2. NOVOLIN N [Suspect]
     Indication: INSULIN-REQUIRING TYPE II DIABETES MELLITUS
     Dosage: 4 IU, UNK
     Route: 058
     Dates: start: 20060206, end: 20070120
  3. NOVORAPID 30 MIX CHU FLEXPEN [Suspect]
     Indication: INSULIN-REQUIRING TYPE II DIABETES MELLITUS
     Dosage: 12 IU, QD
     Route: 058
     Dates: start: 20061021, end: 20070120
  4. HUMALOG                            /00030501/ [Concomitant]
     Dosage: 22 IU, QD
     Route: 058
     Dates: start: 20070120, end: 20070217
  5. HUMACART N [Concomitant]
     Dosage: 4 IU, QD
     Route: 058
     Dates: start: 20070120, end: 20070221
  6. MITIGLINIDE [Concomitant]
     Dates: start: 20070217

REACTIONS (1)
  - LYMPHOEDEMA [None]
